FAERS Safety Report 11290843 (Version 1)
Quarter: 2015Q3

REPORT INFORMATION
  Report Type: Spontaneous
  Country: US (occurrence: US)
  Receive Date: 20150722
  Receipt Date: 20150722
  Transmission Date: 20151125
  Serious: Yes (Hospitalization)
  Sender: FDA-Public Use
  Company Number: US-UNITED THERAPEUTICS-UNT-2015-002907

PATIENT
  Age: 23 Year
  Sex: Female
  Weight: 64.85 kg

DRUGS (3)
  1. WARFARIN [Concomitant]
     Active Substance: WARFARIN
     Indication: PRODUCT USED FOR UNKNOWN INDICATION
  2. REVATIO [Concomitant]
     Active Substance: SILDENAFIL CITRATE
     Indication: PRODUCT USED FOR UNKNOWN INDICATION
  3. REMODULIN [Suspect]
     Active Substance: TREPROSTINIL
     Indication: PULMONARY ARTERIAL HYPERTENSION
     Dosage: 0.017 ?G/KG, CONTINUING
     Route: 041
     Dates: start: 20130108

REACTIONS (6)
  - Device related infection [Recovering/Resolving]
  - Dyspnoea [Unknown]
  - Cough [Not Recovered/Not Resolved]
  - Incorrect dosage administered [Unknown]
  - Nasopharyngitis [Not Recovered/Not Resolved]
  - Fatigue [Unknown]

NARRATIVE: CASE EVENT DATE: 20150312
